FAERS Safety Report 26076058 (Version 1)
Quarter: 2025Q4

REPORT INFORMATION
  Report Type: Spontaneous
  Country: EU (occurrence: EU)
  Receive Date: 20251121
  Receipt Date: 20251121
  Transmission Date: 20260118
  Serious: Yes (Death)
  Sender: JOHNSON AND JOHNSON
  Company Number: None

PATIENT
  Age: 69 Year
  Sex: Female

DRUGS (9)
  1. TOPIRAMATE [Suspect]
     Active Substance: TOPIRAMATE
     Indication: Nightmare
     Dosage: 1.5 TABLETS ONCE A DAY
     Route: 048
     Dates: start: 20211029
  2. DAPAGLIFLOZINE TABLET  5MG / FORXIGA TABLET FILMOMHULD  5MG [Concomitant]
     Indication: Product used for unknown indication
     Dosage: TABLET, 5 MG (MILLIGRAM)
     Route: 048
  3. SEMAGLUTIDE TABLET 14MG / RYBELSUS TABLET 14MG [Concomitant]
     Indication: Product used for unknown indication
     Dosage: TABLET, 14 MG (MILLIGRAM)
     Route: 048
  4. PROPRANOLOL CREME 10MG/G / Brand name not specified [Concomitant]
     Indication: Product used for unknown indication
     Dosage: CREME, 10 MG/G (MILLIGRAM PER GRAM)
     Route: 003
  5. OXAZEPAM [Concomitant]
     Active Substance: OXAZEPAM
     Indication: Product used for unknown indication
     Dosage: TABLET, 10 MG (MILLIGRAM)
     Route: 048
  6. QUETIAPINE TABLET FO  25MG / Brand name not specified [Concomitant]
     Indication: Product used for unknown indication
     Dosage: FILMOMHULDE TABLET, 25 MG (MILLIGRAM)
     Route: 048
  7. SERTRALINE TABLET 100MG / Brand name not specified [Concomitant]
     Indication: Product used for unknown indication
     Dosage: TABLET, 100 MG (MILLIGRAM)
     Route: 048
  8. OMEPRAZOLE [Concomitant]
     Active Substance: OMEPRAZOLE
     Indication: Product used for unknown indication
     Dosage: MAAGSAPRESISTENTE CAPSULE, 20 MG (MILLIGRAM)
     Route: 048
  9. COLECALCIFEROL CAPSULE    800IE / Brand name not specified [Concomitant]
     Indication: Product used for unknown indication
     Dosage: CAPSULE, 800 EENHEDEN
     Route: 048

REACTIONS (2)
  - Completed suicide [Fatal]
  - Suicidal ideation [Fatal]

NARRATIVE: CASE EVENT DATE: 20251103
